FAERS Safety Report 21836879 (Version 1)
Quarter: 2023Q1

REPORT INFORMATION
  Report Type: Spontaneous
  Country: US (occurrence: None)
  Receive Date: 20230106
  Receipt Date: 20230106
  Transmission Date: 20230418
  Serious: Yes (Other)
  Sender: FDA-Public Use
  Company Number: None

PATIENT
  Age: 59 Year
  Sex: Female
  Weight: 42.3 kg

DRUGS (3)
  1. PAXLOVID [Suspect]
     Active Substance: NIRMATRELVIR\RITONAVIR
     Indication: COVID-19
     Dosage: FREQUENCY : TWICE A DAY;?
     Route: 048
     Dates: start: 20230105, end: 20230106
  2. TYLENOL [Concomitant]
     Active Substance: ACETAMINOPHEN
  3. MUCINEX DM [Concomitant]
     Active Substance: DEXTROMETHORPHAN HYDROBROMIDE\GUAIFENESIN

REACTIONS (7)
  - Abdominal pain [None]
  - Pain in extremity [None]
  - Pain in extremity [None]
  - Asthenia [None]
  - Eye pain [None]
  - Headache [None]
  - Odynophagia [None]

NARRATIVE: CASE EVENT DATE: 20230105
